FAERS Safety Report 15226312 (Version 1)
Quarter: 2018Q3

REPORT INFORMATION
  Report Type: Spontaneous
  Country: DE (occurrence: DE)
  Receive Date: 20180801
  Receipt Date: 20180801
  Transmission Date: 20181010
  Serious: Yes (Hospitalization)
  Sender: FDA-Public Use
  Company Number: DE-ASTRAZENECA-2018SE94600

PATIENT
  Age: 21 Year
  Sex: Female

DRUGS (1)
  1. DUORESP SPIROMAX [Suspect]
     Active Substance: BUDESONIDE\FORMOTEROL
     Indication: ASTHMA
     Dosage: 1 DOSAGE FORM CONTAINS 160 MICROGRAMM BUDESONIDE AND 4.5 MICROGRAMM FORMOTEROLE
     Route: 055

REACTIONS (4)
  - Orthostatic intolerance [Unknown]
  - Tachycardia [Unknown]
  - Blood pressure decreased [Unknown]
  - Syncope [Unknown]

NARRATIVE: CASE EVENT DATE: 201804
